FAERS Safety Report 7450008-7 (Version None)
Quarter: 2011Q2

REPORT INFORMATION
  Report Type: 
  Country: None (occurrence: None)
  Receive Date: 20110502
  Receipt Date: 20110420
  Transmission Date: 20111010
  Serious: Yes (Hospitalization, Other)
  Sender: FDA-Public Use
  Company Number: FR-ELI_LILLY_AND_COMPANY-FR201102006128

PATIENT
  Age: 69 Year
  Sex: Female
  Weight: 63 kg

DRUGS (4)
  1. LANZOR [Concomitant]
     Dosage: 15 MG, QD
     Route: 048
  2. FORTEO [Suspect]
     Indication: OSTEOPOROSIS
     Dosage: 20 UG, QD
     Route: 058
     Dates: start: 20100312
  3. LEVOTHYROX [Concomitant]
     Dosage: 100 UG, QD
     Route: 048
  4. SKENAN [Concomitant]
     Dosage: 90 MG, BID
     Route: 048

REACTIONS (1)
  - OSTEONECROSIS [None]
